FAERS Safety Report 20790927 (Version 8)
Quarter: 2024Q4

REPORT INFORMATION
  Report Type: Spontaneous
  Country: CA (occurrence: CA)
  Receive Date: 20220505
  Receipt Date: 20241203
  Transmission Date: 20250114
  Serious: Yes (Other)
  Sender: HLS THERAPEUTICS
  Company Number: CA-HLS-202200886

PATIENT
  Sex: Female

DRUGS (340)
  1. FLUMIST QUADRIVALENT [Suspect]
     Active Substance: INFLUENZA A VIRUS A/CALIFORNIA/7/2009 (H1N1) LIVE(ATTENUATED) ANTIGEN\INFLUENZA A VIRUS A/TEXAS/50/2
     Indication: Prophylaxis
     Dosage: NOT SPECIFIED DOSAGE FORM
     Route: 065
  2. FLUMIST QUADRIVALENT [Suspect]
     Active Substance: INFLUENZA A VIRUS A/CALIFORNIA/7/2009 (H1N1) LIVE(ATTENUATED) ANTIGEN\INFLUENZA A VIRUS A/TEXAS/50/2
     Indication: Prophylaxis
     Route: 065
  3. REXULTI [Suspect]
     Active Substance: BREXPIPRAZOLE
     Indication: Product used for unknown indication
     Dosage: TABLETS DOSAGE FORM
     Route: 065
  4. DIVALPROEX SODIUM [Suspect]
     Active Substance: DIVALPROEX SODIUM
     Indication: Product used for unknown indication
     Dosage: 2 EVERY 1 DAYS?NOT SPECIFIED DOSAGE FORM
     Route: 065
  5. DIVALPROEX SODIUM [Suspect]
     Active Substance: DIVALPROEX SODIUM
     Indication: Product used for unknown indication
     Route: 065
  6. ACETAMINOPHEN [Suspect]
     Active Substance: ACETAMINOPHEN
     Indication: Pain
     Route: 065
  7. ACETAMINOPHEN [Suspect]
     Active Substance: ACETAMINOPHEN
     Indication: Pyrexia
     Route: 065
  8. ACETAMINOPHEN [Suspect]
     Active Substance: ACETAMINOPHEN
     Indication: Pain
     Route: 065
  9. ACETAMINOPHEN [Suspect]
     Active Substance: ACETAMINOPHEN
     Indication: Pyrexia
     Route: 065
  10. BREXPIPRAZOLE [Suspect]
     Active Substance: BREXPIPRAZOLE
     Indication: Rash
     Dosage: AMOUNT: 1 DOSAGE FORMS?NOT SPECIFIED DOSAGE FORM
     Route: 067
  11. BREXPIPRAZOLE [Suspect]
     Active Substance: BREXPIPRAZOLE
     Indication: Rash
     Dosage: 1 EVERY 1 DAYS?AMOUNT: 1 DOSAGE FORMS
     Route: 065
  12. BREXPIPRAZOLE [Suspect]
     Active Substance: BREXPIPRAZOLE
     Indication: Rash
     Dosage: 1 EVERY 1 DAYS?AMOUNT: 3 DOSAGE FORMS
     Route: 065
  13. BREXPIPRAZOLE [Suspect]
     Active Substance: BREXPIPRAZOLE
     Indication: Rash
     Dosage: 2 EVERY 1 DAYS?AMOUNT: 1 DOSAGE FORMS?NOT SPECIFIED DOSAGE FORM
     Route: 065
  14. BREXPIPRAZOLE [Suspect]
     Active Substance: BREXPIPRAZOLE
     Indication: Rash
     Route: 065
  15. BREXPIPRAZOLE [Suspect]
     Active Substance: BREXPIPRAZOLE
     Indication: Rash
     Dosage: NOT SPECIFIED DOSAGE FORM
     Route: 065
  16. INFLUENZA VIRUS VACCINE [Suspect]
     Active Substance: INFLUENZA VIRUS VACCINE
     Indication: Product used for unknown indication
     Dosage: AMOUNT: 1 DOSAGE FORMS?NOT SPECIFIED DOSAGE FORM
     Route: 065
  17. INFLUENZA VIRUS VACCINE [Suspect]
     Active Substance: INFLUENZA VIRUS VACCINE
     Indication: Product used for unknown indication
     Dosage: 1 EVERY 1 DAYS?AMOUNT: 1 DOSAGE FORMS
     Route: 065
  18. INFLUENZA VIRUS VACCINE [Suspect]
     Active Substance: INFLUENZA VIRUS VACCINE
     Indication: Product used for unknown indication
     Dosage: 2 EVERY 1 DAYS?AMOUNT: 1 DOSAGE FORMS
     Route: 065
  19. INFLUENZA VIRUS VACCINE [Suspect]
     Active Substance: INFLUENZA VIRUS VACCINE
     Indication: Product used for unknown indication
     Route: 065
  20. INFLUENZA VIRUS VACCINE [Suspect]
     Active Substance: INFLUENZA VIRUS VACCINE
     Indication: Product used for unknown indication
     Route: 065
  21. RANITIDINE HYDROCHLORIDE [Suspect]
     Active Substance: RANITIDINE HYDROCHLORIDE
     Indication: Product used for unknown indication
     Dosage: 2 EVERY 1 DAYS?AMOUNT: 1 DOSAGE FORMS
     Route: 065
  22. RANITIDINE HYDROCHLORIDE [Suspect]
     Active Substance: RANITIDINE HYDROCHLORIDE
     Indication: Product used for unknown indication
     Dosage: TABLETS DOSAGE FORM
     Route: 065
  23. SIMETHICONE (DIMETHICONE) [Suspect]
     Active Substance: DIMETHICONE
     Indication: Abdominal discomfort
     Dosage: AMOUNT: 30 ML
     Route: 065
  24. SIMETHICONE (DIMETHICONE) [Suspect]
     Active Substance: DIMETHICONE
     Indication: Abdominal discomfort
     Dosage: 2 EVERY 1 DAYS?AMOUNT: 1 DOSAGE FORMS?NOT SPECIFIED DOSAGE FORM
     Route: 065
  25. VITAMIN D3 [Suspect]
     Active Substance: CHOLECALCIFEROL
     Indication: Insomnia
     Dosage: AMOUNT: 1 DOSAGE FORMS?CAPSULES DOSAGE FORM
     Route: 065
  26. VITAMIN D3 [Suspect]
     Active Substance: CHOLECALCIFEROL
     Indication: Insomnia
     Dosage: 1 EVERY 1 DAYS?AMOUNT: 1 DOSAGE FORMS
     Route: 065
  27. VITAMIN D3 [Suspect]
     Active Substance: CHOLECALCIFEROL
     Indication: Insomnia
     Dosage: 1 EVERY 1 DAYS?AMOUNT: 1 DOSAGE FORMS?TABLETS DOSAGE FORM
     Route: 065
  28. AMLODIPINE [Suspect]
     Active Substance: AMLODIPINE BESYLATE
     Indication: Rash
     Dosage: 1 EVERY 1 DAYS?AMOUNT: 1 DOSAGE FORMS
     Route: 065
  29. AMLODIPINE [Suspect]
     Active Substance: AMLODIPINE BESYLATE
     Indication: Rash
     Dosage: 1 EVERY 1 DAYS?AMOUNT: 1 DOSAGE FORMS?TABLETS DOSAGE FORM
     Route: 065
  30. AMLODIPINE [Suspect]
     Active Substance: AMLODIPINE BESYLATE
     Indication: Rash
     Dosage: 1 EVERY 1 DAYS?AMOUNT: 3 DOSAGE FORMS
     Route: 065
  31. AMLODIPINE [Suspect]
     Active Substance: AMLODIPINE BESYLATE
     Indication: Rash
     Dosage: NOT SPECIFIED DOSAGE FORM
     Route: 065
  32. DIVIGEL [Suspect]
     Active Substance: ESTRADIOL
     Indication: Product used for unknown indication
     Route: 065
  33. VALPROIC ACID [Suspect]
     Active Substance: VALPROIC ACID
     Indication: Insomnia
     Dosage: NOT SPECIFIED DOSAGE FORM
     Route: 065
  34. VALPROIC ACID [Suspect]
     Active Substance: VALPROIC ACID
     Indication: Insomnia
     Dosage: TABLETS DOSAGE FORM
     Route: 065
  35. VALPROIC ACID [Suspect]
     Active Substance: VALPROIC ACID
     Indication: Insomnia
     Route: 065
  36. ACETAMINOPHEN AND CAFFEINE [Suspect]
     Active Substance: ACETAMINOPHEN\CAFFEINE
     Indication: Pain
     Dosage: AMOUNT: 3 DOSAGE FORMS?NOT SPECIFIED DOSAGE FORM
     Route: 065
  37. ACETAMINOPHEN AND CAFFEINE [Suspect]
     Active Substance: ACETAMINOPHEN\CAFFEINE
     Indication: Pyrexia
     Dosage: AMOUNT: 3 DOSAGE FORMS?NOT SPECIFIED DOSAGE FORM
     Route: 065
  38. ACETAMINOPHEN AND CAFFEINE [Suspect]
     Active Substance: ACETAMINOPHEN\CAFFEINE
     Indication: Pain
     Dosage: 2 EVERY 1 DAYS?AMOUNT: 2 DOSAGE FORMS
     Route: 065
  39. ACETAMINOPHEN AND CAFFEINE [Suspect]
     Active Substance: ACETAMINOPHEN\CAFFEINE
     Indication: Pyrexia
     Dosage: 2 EVERY 1 DAYS?AMOUNT: 2 DOSAGE FORMS
     Route: 065
  40. ACETAMINOPHEN AND CAFFEINE [Suspect]
     Active Substance: ACETAMINOPHEN\CAFFEINE
     Indication: Pain
     Route: 065
  41. ACETAMINOPHEN AND CAFFEINE [Suspect]
     Active Substance: ACETAMINOPHEN\CAFFEINE
     Indication: Pyrexia
     Route: 065
  42. ACETAMINOPHEN\PHENYLEPHRINE HYDROCHLORIDE [Suspect]
     Active Substance: ACETAMINOPHEN\PHENYLEPHRINE HYDROCHLORIDE
     Indication: Pain
     Route: 065
  43. ALUMINUM HYDROXIDE [Suspect]
     Active Substance: ALUMINUM HYDROXIDE
     Indication: Abdominal discomfort
     Dosage: AMOUNT: 30 ML
     Route: 048
  44. ALUMINUM HYDROXIDE [Suspect]
     Active Substance: ALUMINUM HYDROXIDE
     Indication: Abdominal discomfort
     Route: 065
  45. AMLODIPINE BESYLATE [Suspect]
     Active Substance: AMLODIPINE BESYLATE
     Indication: Product used for unknown indication
     Dosage: 1 EVERY 1 DAYS?AMOUNT: 1 DOSAGE FORMS
     Route: 065
  46. ARIPIPRAZOLE [Suspect]
     Active Substance: ARIPIPRAZOLE
     Indication: Product used for unknown indication
     Route: 065
  47. ARIPIPRAZOLE [Suspect]
     Active Substance: ARIPIPRAZOLE
     Indication: Product used for unknown indication
     Dosage: NOT SPECIFIED DOSAGE FORM
     Route: 065
  48. CHOLECALCIFEROL [Suspect]
     Active Substance: CHOLECALCIFEROL
     Indication: Product used for unknown indication
     Dosage: AMOUNT: 1 DOSAGE FORMS
     Route: 065
  49. CHOLECALCIFEROL [Suspect]
     Active Substance: CHOLECALCIFEROL
     Indication: Product used for unknown indication
     Dosage: NOT SPECIFIED DOSAGE FORM
     Route: 065
  50. CLOTRIMAZOLE [Suspect]
     Active Substance: CLOTRIMAZOLE
     Indication: Rash
     Dosage: 1 EVERY 1 DAYS?AMOUNT: 2 DOSAGE FORMS?NOT SPECIFIED DOSAGE FORM
     Route: 065
  51. CLOTRIMAZOLE [Suspect]
     Active Substance: CLOTRIMAZOLE
     Indication: Rash
     Route: 065
  52. CLOZAPINE [Suspect]
     Active Substance: CLOZAPINE
     Indication: Product used for unknown indication
     Dosage: 1 EVERY 1 DAYS?AMOUNT: 1 DOSAGE FORMS
     Route: 065
  53. CLOZAPINE [Suspect]
     Active Substance: CLOZAPINE
     Indication: Product used for unknown indication
     Dosage: 1 EVERY 1 DAYS?AMOUNT: 1 DOSAGE FORMS?TABLETS DOSAGE FORM
     Route: 065
  54. CLOZAPINE [Suspect]
     Active Substance: CLOZAPINE
     Indication: Product used for unknown indication
     Dosage: 1 EVERY 1 DAYS?AMOUNT: 3 DOSAGE FORMS
     Route: 065
  55. CLOZAPINE [Suspect]
     Active Substance: CLOZAPINE
     Indication: Product used for unknown indication
     Route: 065
  56. CONJUGATED ESTROGENS [Suspect]
     Active Substance: ESTROGENS, CONJUGATED
     Indication: Product used for unknown indication
     Route: 065
  57. CONJUGATED ESTROGENS [Suspect]
     Active Substance: ESTROGENS, CONJUGATED
     Indication: Product used for unknown indication
     Route: 065
  58. CONJUGATED ESTROGENS [Suspect]
     Active Substance: ESTROGENS, CONJUGATED
     Indication: Product used for unknown indication
     Dosage: NOT SPECIFIED DOSAGE FORM
     Route: 061
  59. CONJUGATED ESTROGENS [Suspect]
     Active Substance: ESTROGENS, CONJUGATED
     Indication: Product used for unknown indication
     Route: 065
  60. ESTRADIOL [Suspect]
     Active Substance: ESTRADIOL
     Indication: Product used for unknown indication
     Dosage: AMOUNT: 1 DOSAGE FORMS
     Route: 067
  61. ESTRADIOL [Suspect]
     Active Substance: ESTRADIOL
     Indication: Product used for unknown indication
     Dosage: AMOUNT: 1 DOSAGE FORMS?NOT SPECIFIED DOSAGE FORM
     Route: 067
  62. LEVOTHYROXINE SODIUM [Suspect]
     Active Substance: LEVOTHYROXINE SODIUM
     Indication: Product used for unknown indication
     Route: 065
  63. OLANZAPINE [Suspect]
     Active Substance: OLANZAPINE
     Indication: Mood altered
     Dosage: 1 EVERY 1 DAYS?AMOUNT: 1 DOSAGE FORMS
     Route: 065
  64. OLANZAPINE [Suspect]
     Active Substance: OLANZAPINE
     Indication: Mood altered
     Dosage: 1 EVERY 1 DAYS?AMOUNT: 2 DOSAGE FORMS?NOT SPECIFIED DOSAGE FORM
     Route: 065
  65. OLANZAPINE [Suspect]
     Active Substance: OLANZAPINE
     Indication: Mood altered
     Route: 065
  66. OLANZAPINE [Suspect]
     Active Substance: OLANZAPINE
     Indication: Mood altered
     Route: 065
  67. OLANZAPINE [Suspect]
     Active Substance: OLANZAPINE
     Indication: Mood altered
     Route: 065
  68. PREMARIN WITH METHYLTESTOSTERONE [Suspect]
     Active Substance: ESTROGENS, CONJUGATED\METHYLTESTOSTERONE
     Indication: Product used for unknown indication
     Dosage: AMOUNT: 1 DOSAGE FORMS
     Route: 065
  69. PREMARIN WITH METHYLTESTOSTERONE [Suspect]
     Active Substance: ESTROGENS, CONJUGATED\METHYLTESTOSTERONE
     Indication: Product used for unknown indication
     Dosage: AMOUNT: 1 DOSAGE FORMS?CAPSULES DOSAGE FORM
     Route: 065
  70. PREMARIN WITH METHYLTESTOSTERONE [Suspect]
     Active Substance: ESTROGENS, CONJUGATED\METHYLTESTOSTERONE
     Indication: Product used for unknown indication
     Dosage: 1 EVERY 1 DAYS?AMOUNT: 2 DOSAGE FORMS
     Route: 065
  71. PREMARIN WITH METHYLTESTOSTERONE [Suspect]
     Active Substance: ESTROGENS, CONJUGATED\METHYLTESTOSTERONE
     Indication: Product used for unknown indication
     Dosage: 1 EVERY 1 DAYS?AMOUNT: 2 DOSAGE FORMS?NOT SPECIFIED DOSAGE FORM
     Route: 065
  72. PREMARIN WITH METHYLTESTOSTERONE [Suspect]
     Active Substance: ESTROGENS, CONJUGATED\METHYLTESTOSTERONE
     Indication: Product used for unknown indication
     Dosage: 2 EVERY 1 DAYS?AMOUNT: 1 DOSAGE FORMS
     Route: 065
  73. PREMARIN WITH METHYLTESTOSTERONE [Suspect]
     Active Substance: ESTROGENS, CONJUGATED\METHYLTESTOSTERONE
     Indication: Product used for unknown indication
     Dosage: 2 EVERY 1 DAYS?AMOUNT: 1 DOSAGE FORMS
     Route: 065
  74. PREMARIN WITH METHYLTESTOSTERONE [Suspect]
     Active Substance: ESTROGENS, CONJUGATED\METHYLTESTOSTERONE
     Indication: Product used for unknown indication
     Dosage: 2 EVERY 1 DAYS?AMOUNT: 150 MILLIGRAM
     Route: 065
  75. PREMARIN WITH METHYLTESTOSTERONE [Suspect]
     Active Substance: ESTROGENS, CONJUGATED\METHYLTESTOSTERONE
     Indication: Product used for unknown indication
     Route: 065
  76. PREMARIN WITH METHYLTESTOSTERONE [Suspect]
     Active Substance: ESTROGENS, CONJUGATED\METHYLTESTOSTERONE
     Indication: Product used for unknown indication
     Dosage: NOT SPECIFIED DOSAGE FORM
     Route: 065
  77. PREMARIN WITH METHYLTESTOSTERONE [Suspect]
     Active Substance: ESTROGENS, CONJUGATED\METHYLTESTOSTERONE
     Indication: Product used for unknown indication
     Dosage: TABLETS DOSAGE FORM
     Route: 065
  78. PREMARIN WITH METHYLTESTOSTERONE [Suspect]
     Active Substance: ESTROGENS, CONJUGATED\METHYLTESTOSTERONE
     Indication: Product used for unknown indication
     Dosage: TOPICAL ROUTE OF ADMINISTRATION
     Route: 065
  79. ZOPICLONE [Suspect]
     Active Substance: ZOPICLONE
     Indication: Insomnia
     Dosage: 1 EVERY 1 DAYS?AMOUNT: 1 DOSAGE FORMS?TABLETS DOSAGE FORM
     Route: 065
  80. ZOPICLONE [Suspect]
     Active Substance: ZOPICLONE
     Indication: Insomnia
     Route: 065
  81. AMLODIPINE BESYLATE [Suspect]
     Active Substance: AMLODIPINE BESYLATE
     Indication: Product used for unknown indication
     Dosage: 1 EVERY 1 DAYS?AMOUNT: 1 DOSAGE FORMS
     Route: 065
  82. AMLODIPINE MESYLATE [Suspect]
     Active Substance: AMLODIPINE MESYLATE
     Indication: Product used for unknown indication
     Route: 065
  83. ESTRADIOL BENZOATE [Suspect]
     Active Substance: ESTRADIOL BENZOATE
     Indication: Product used for unknown indication
     Dosage: 1.0 DOSAGE FORMS
     Route: 067
  84. INFLUENZA VIRUS VACCINE [Suspect]
     Active Substance: INFLUENZA VIRUS VACCINE
     Indication: Mood altered
     Dosage: AMOUNT: 1 DOSAGE FORMS?NOT SPECIFIED DOSAGE FORM
     Route: 065
  85. INFLUENZA VIRUS VACCINE [Suspect]
     Active Substance: INFLUENZA VIRUS VACCINE
     Indication: Prophylaxis
     Dosage: AMOUNT: 1 DOSAGE FORMS?NOT SPECIFIED DOSAGE FORM
     Route: 065
  86. INFLUENZA VIRUS VACCINE [Suspect]
     Active Substance: INFLUENZA VIRUS VACCINE
     Indication: Mood altered
     Dosage: 1 EVERY 1 DAYS?AMOUNT: 1 DOSAGE FORMS?NOT SPECIFIED DOSAGE FORM
     Route: 065
  87. INFLUENZA VIRUS VACCINE [Suspect]
     Active Substance: INFLUENZA VIRUS VACCINE
     Indication: Prophylaxis
     Dosage: 1 EVERY 1 DAYS?AMOUNT: 1 DOSAGE FORMS?NOT SPECIFIED DOSAGE FORM
     Route: 065
  88. INFLUENZA VIRUS VACCINE [Suspect]
     Active Substance: INFLUENZA VIRUS VACCINE
     Indication: Mood altered
     Dosage: 1 EVERY 1 DAYS?AMOUNT: 2 DOSAGE FORMS?NOT SPECIFIED DOSAGE FORM
     Route: 065
  89. INFLUENZA VIRUS VACCINE [Suspect]
     Active Substance: INFLUENZA VIRUS VACCINE
     Indication: Prophylaxis
     Dosage: 1 EVERY 1 DAYS?AMOUNT: 2 DOSAGE FORMS?NOT SPECIFIED DOSAGE FORM
     Route: 065
  90. INFLUENZA VIRUS VACCINE [Suspect]
     Active Substance: INFLUENZA VIRUS VACCINE
     Indication: Mood altered
     Dosage: 2 EVERY 1 DAYS?AMOUNT: 1 DOSAGE FORMS?NOT SPECIFIED DOSAGE FORM
     Route: 065
  91. INFLUENZA VIRUS VACCINE [Suspect]
     Active Substance: INFLUENZA VIRUS VACCINE
     Indication: Prophylaxis
     Dosage: 2 EVERY 1 DAYS?AMOUNT: 1 DOSAGE FORMS?NOT SPECIFIED DOSAGE FORM
     Route: 065
  92. INFLUENZA VIRUS VACCINE [Suspect]
     Active Substance: INFLUENZA VIRUS VACCINE
     Indication: Mood altered
     Dosage: NOT SPECIFIED DOSAGE FORM
     Route: 065
  93. INFLUENZA VIRUS VACCINE [Suspect]
     Active Substance: INFLUENZA VIRUS VACCINE
     Indication: Prophylaxis
     Dosage: NOT SPECIFIED DOSAGE FORM
     Route: 065
  94. INFLUENZA VIRUS VACCINE [Suspect]
     Active Substance: INFLUENZA VIRUS VACCINE
     Indication: Mood altered
     Dosage: ROUTE OF ADMINISTRATION: INTRA-NASAL
     Route: 065
  95. INFLUENZA VIRUS VACCINE [Suspect]
     Active Substance: INFLUENZA VIRUS VACCINE
     Indication: Prophylaxis
     Dosage: ROUTE OF ADMINISTRATION: INTRA-NASAL
     Route: 065
  96. PENTOXYVERINE [Suspect]
     Active Substance: PENTOXYVERINE
     Indication: Product used for unknown indication
     Route: 065
  97. PHENYLEPHRINE [Suspect]
     Active Substance: PHENYLEPHRINE
     Indication: Abdominal discomfort
     Dosage: AMOUNT: 0.5 GRAM
     Route: 061
  98. PHENYLEPHRINE [Suspect]
     Active Substance: PHENYLEPHRINE
     Indication: Abdominal discomfort
     Dosage: AMOUNT: 5 GRAM
     Route: 065
  99. PHENYLEPHRINE [Suspect]
     Active Substance: PHENYLEPHRINE
     Indication: Abdominal discomfort
     Dosage: 1 EVERY 1 DAYS?AMOUNT: 2 DOSAGE FORMS
     Route: 065
  100. PHENYLEPHRINE [Suspect]
     Active Substance: PHENYLEPHRINE
     Indication: Abdominal discomfort
     Dosage: 1 EVERY 1 DAYS?AMOUNT: 2 DOSAGE FORMS
     Route: 065
  101. PHENYLEPHRINE [Suspect]
     Active Substance: PHENYLEPHRINE
     Indication: Abdominal discomfort
     Dosage: 2 EVERY 1 DAYS?AMOUNT: 1 DOSAGE FORMS
     Route: 065
  102. PHENYLEPHRINE [Suspect]
     Active Substance: PHENYLEPHRINE
     Indication: Abdominal discomfort
     Dosage: 2 EVERY 1 DAYS?AMOUNT: 150 MILLIGRAM
     Route: 065
  103. PHENYLEPHRINE [Suspect]
     Active Substance: PHENYLEPHRINE
     Indication: Abdominal discomfort
     Dosage: 2 EVERY 1 DAYS?AMOUNT: 150 MILLIGRAM
     Route: 065
  104. PHENYLEPHRINE [Suspect]
     Active Substance: PHENYLEPHRINE
     Indication: Abdominal discomfort
     Route: 065
  105. PHENYLEPHRINE [Suspect]
     Active Substance: PHENYLEPHRINE
     Indication: Abdominal discomfort
     Route: 061
  106. PHENYLEPHRINE [Suspect]
     Active Substance: PHENYLEPHRINE
     Indication: Abdominal discomfort
     Route: 065
  107. PHENYLEPHRINE [Suspect]
     Active Substance: PHENYLEPHRINE
     Indication: Abdominal discomfort
     Dosage: TABLETS DOSAGE FORM
     Route: 065
  108. VALPROATE SODIUM [Suspect]
     Active Substance: VALPROATE SODIUM
     Indication: Insomnia
     Dosage: AMOUNT: 1 DOSAGE FORMS
     Route: 065
  109. VALPROATE SODIUM [Suspect]
     Active Substance: VALPROATE SODIUM
     Indication: Insomnia
     Dosage: AMOUNT: 1 DOSAGE FORMS?CAPSULES DOSAGE FORM
     Route: 065
  110. VALPROATE SODIUM [Suspect]
     Active Substance: VALPROATE SODIUM
     Indication: Insomnia
     Dosage: AMOUNT: 1 DOSAGE FORMS?NOT SPECIFIED DOSAGE FORM
     Route: 065
  111. VALPROATE SODIUM [Suspect]
     Active Substance: VALPROATE SODIUM
     Indication: Insomnia
     Dosage: 1 EVERY 1 DAYS?AMOUNT: 1 DOSAGE FORMS
     Route: 048
  112. VALPROATE SODIUM [Suspect]
     Active Substance: VALPROATE SODIUM
     Indication: Insomnia
     Dosage: 1 EVERY 1 DAYS?AMOUNT: 2 DOSAGE FORMS
     Route: 065
  113. VALPROATE SODIUM [Suspect]
     Active Substance: VALPROATE SODIUM
     Indication: Insomnia
     Dosage: 1 EVERY 1 DAYS?AMOUNT: 2 DOSAGE FORMS?NOT SPECIFIED DOSAGE FORM
     Route: 065
  114. VALPROATE SODIUM [Suspect]
     Active Substance: VALPROATE SODIUM
     Indication: Insomnia
     Dosage: 2 EVERY 1 DAYS?AMOUNT: 1 DOSAGE FORMS?NOT SPECIFIED DOSAGE FORM
     Route: 065
  115. VALPROATE SODIUM [Suspect]
     Active Substance: VALPROATE SODIUM
     Indication: Insomnia
     Route: 065
  116. VALPROATE SODIUM [Suspect]
     Active Substance: VALPROATE SODIUM
     Indication: Insomnia
     Route: 065
  117. VALPROATE SODIUM [Suspect]
     Active Substance: VALPROATE SODIUM
     Indication: Insomnia
     Dosage: CAPSULES DOSAGE FORM
     Route: 065
  118. VALPROATE SODIUM [Suspect]
     Active Substance: VALPROATE SODIUM
     Indication: Insomnia
     Dosage: NOT SPECIFIED DOSAGE FORM
     Route: 065
  119. ALUMINUM [Suspect]
     Active Substance: ALUMINUM
     Indication: Abdominal discomfort
     Dosage: AMOUNT: 0.2 ML?INTRA-NASAL ROUTE OF ADMINISTRATION?NOT SPECIFIED DOSAGE FORM
     Route: 065
  120. ALUMINUM [Suspect]
     Active Substance: ALUMINUM
     Indication: Mood altered
     Dosage: AMOUNT: 0.2 ML?INTRA-NASAL ROUTE OF ADMINISTRATION?NOT SPECIFIED DOSAGE FORM
     Route: 065
  121. ALUMINUM [Suspect]
     Active Substance: ALUMINUM
     Indication: Prophylaxis
     Dosage: AMOUNT: 0.2 ML?INTRA-NASAL ROUTE OF ADMINISTRATION?NOT SPECIFIED DOSAGE FORM
     Route: 065
  122. ALUMINUM [Suspect]
     Active Substance: ALUMINUM
     Indication: Rash
     Dosage: AMOUNT: 0.2 ML?INTRA-NASAL ROUTE OF ADMINISTRATION?NOT SPECIFIED DOSAGE FORM
     Route: 065
  123. ALUMINUM [Suspect]
     Active Substance: ALUMINUM
     Indication: Abdominal discomfort
     Dosage: AMOUNT: 1 DOSAGE FORMS
     Route: 065
  124. ALUMINUM [Suspect]
     Active Substance: ALUMINUM
     Indication: Mood altered
     Dosage: AMOUNT: 1 DOSAGE FORMS
     Route: 065
  125. ALUMINUM [Suspect]
     Active Substance: ALUMINUM
     Indication: Prophylaxis
     Dosage: AMOUNT: 1 DOSAGE FORMS
     Route: 065
  126. ALUMINUM [Suspect]
     Active Substance: ALUMINUM
     Indication: Rash
     Dosage: AMOUNT: 1 DOSAGE FORMS
     Route: 065
  127. ALUMINUM [Suspect]
     Active Substance: ALUMINUM
     Indication: Abdominal discomfort
     Dosage: AMOUNT: 1 DOSAGE FORMS
     Route: 067
  128. ALUMINUM [Suspect]
     Active Substance: ALUMINUM
     Indication: Mood altered
     Dosage: AMOUNT: 1 DOSAGE FORMS
     Route: 067
  129. ALUMINUM [Suspect]
     Active Substance: ALUMINUM
     Indication: Prophylaxis
     Dosage: AMOUNT: 1 DOSAGE FORMS
     Route: 067
  130. ALUMINUM [Suspect]
     Active Substance: ALUMINUM
     Indication: Rash
     Dosage: AMOUNT: 1 DOSAGE FORMS
     Route: 067
  131. ALUMINUM [Suspect]
     Active Substance: ALUMINUM
     Indication: Abdominal discomfort
     Dosage: AMOUNT: 1 DOSAGE FORMS?TABLETS DOSAGE FORM
     Route: 065
  132. ALUMINUM [Suspect]
     Active Substance: ALUMINUM
     Indication: Mood altered
     Dosage: AMOUNT: 1 DOSAGE FORMS?TABLETS DOSAGE FORM
     Route: 065
  133. ALUMINUM [Suspect]
     Active Substance: ALUMINUM
     Indication: Prophylaxis
     Dosage: AMOUNT: 1 DOSAGE FORMS?TABLETS DOSAGE FORM
     Route: 065
  134. ALUMINUM [Suspect]
     Active Substance: ALUMINUM
     Indication: Rash
     Dosage: AMOUNT: 1 DOSAGE FORMS?TABLETS DOSAGE FORM
     Route: 065
  135. ALUMINUM [Suspect]
     Active Substance: ALUMINUM
     Indication: Abdominal discomfort
     Dosage: AMOUNT: 1 MILLIGRAM
     Route: 067
  136. ALUMINUM [Suspect]
     Active Substance: ALUMINUM
     Indication: Mood altered
     Dosage: AMOUNT: 1 MILLIGRAM
     Route: 067
  137. ALUMINUM [Suspect]
     Active Substance: ALUMINUM
     Indication: Prophylaxis
     Dosage: AMOUNT: 1 MILLIGRAM
     Route: 067
  138. ALUMINUM [Suspect]
     Active Substance: ALUMINUM
     Indication: Rash
     Dosage: AMOUNT: 1 MILLIGRAM
     Route: 067
  139. ALUMINUM [Suspect]
     Active Substance: ALUMINUM
     Indication: Abdominal discomfort
     Dosage: AMOUNT: 3 DOSAGE FORMS
     Route: 065
  140. ALUMINUM [Suspect]
     Active Substance: ALUMINUM
     Indication: Mood altered
     Dosage: AMOUNT: 3 DOSAGE FORMS
     Route: 065
  141. ALUMINUM [Suspect]
     Active Substance: ALUMINUM
     Indication: Prophylaxis
     Dosage: AMOUNT: 3 DOSAGE FORMS
     Route: 065
  142. ALUMINUM [Suspect]
     Active Substance: ALUMINUM
     Indication: Rash
     Dosage: AMOUNT: 3 DOSAGE FORMS
     Route: 065
  143. ALUMINUM [Suspect]
     Active Substance: ALUMINUM
     Indication: Abdominal discomfort
     Dosage: AMOUNT: 3 DOSAGE FORMS?NOT SPECIFIED DOSAGE FORM
     Route: 065
  144. ALUMINUM [Suspect]
     Active Substance: ALUMINUM
     Indication: Mood altered
     Dosage: AMOUNT: 3 DOSAGE FORMS?NOT SPECIFIED DOSAGE FORM
     Route: 065
  145. ALUMINUM [Suspect]
     Active Substance: ALUMINUM
     Indication: Prophylaxis
     Dosage: AMOUNT: 3 DOSAGE FORMS?NOT SPECIFIED DOSAGE FORM
     Route: 065
  146. ALUMINUM [Suspect]
     Active Substance: ALUMINUM
     Indication: Rash
     Dosage: AMOUNT: 3 DOSAGE FORMS?NOT SPECIFIED DOSAGE FORM
     Route: 065
  147. ALUMINUM [Suspect]
     Active Substance: ALUMINUM
     Indication: Abdominal discomfort
     Dosage: AMOUNT: 30 ML?LIQUID ORAL DOSAGE FORM
     Route: 048
  148. ALUMINUM [Suspect]
     Active Substance: ALUMINUM
     Indication: Mood altered
     Dosage: AMOUNT: 30 ML?LIQUID ORAL DOSAGE FORM
     Route: 048
  149. ALUMINUM [Suspect]
     Active Substance: ALUMINUM
     Indication: Prophylaxis
     Dosage: AMOUNT: 30 ML?LIQUID ORAL DOSAGE FORM
     Route: 048
  150. ALUMINUM [Suspect]
     Active Substance: ALUMINUM
     Indication: Rash
     Dosage: AMOUNT: 30 ML?LIQUID ORAL DOSAGE FORM
     Route: 048
  151. ALUMINUM [Suspect]
     Active Substance: ALUMINUM
     Indication: Abdominal discomfort
     Dosage: 1 EVERY 12 HOURS?AMOUNT: 4 DOSAGE FORMS
     Route: 065
  152. ALUMINUM [Suspect]
     Active Substance: ALUMINUM
     Indication: Mood altered
     Dosage: 1 EVERY 12 HOURS?AMOUNT: 4 DOSAGE FORMS
     Route: 065
  153. ALUMINUM [Suspect]
     Active Substance: ALUMINUM
     Indication: Prophylaxis
     Dosage: 1 EVERY 12 HOURS?AMOUNT: 4 DOSAGE FORMS
     Route: 065
  154. ALUMINUM [Suspect]
     Active Substance: ALUMINUM
     Indication: Rash
     Dosage: 1 EVERY 12 HOURS?AMOUNT: 4 DOSAGE FORMS
     Route: 065
  155. ALUMINUM [Suspect]
     Active Substance: ALUMINUM
     Indication: Abdominal discomfort
     Route: 065
  156. ALUMINUM [Suspect]
     Active Substance: ALUMINUM
     Indication: Mood altered
     Route: 065
  157. ALUMINUM [Suspect]
     Active Substance: ALUMINUM
     Indication: Prophylaxis
     Route: 065
  158. ALUMINUM [Suspect]
     Active Substance: ALUMINUM
     Indication: Rash
     Route: 065
  159. ALUMINUM [Suspect]
     Active Substance: ALUMINUM
     Indication: Abdominal discomfort
     Route: 066
  160. ALUMINUM [Suspect]
     Active Substance: ALUMINUM
     Indication: Mood altered
     Route: 066
  161. ALUMINUM [Suspect]
     Active Substance: ALUMINUM
     Indication: Prophylaxis
     Route: 066
  162. ALUMINUM [Suspect]
     Active Substance: ALUMINUM
     Indication: Rash
     Route: 066
  163. ALUMINUM [Suspect]
     Active Substance: ALUMINUM
     Indication: Abdominal discomfort
     Dosage: NOT SPECIFIED DOSAGE FORM
     Route: 065
  164. ALUMINUM [Suspect]
     Active Substance: ALUMINUM
     Indication: Mood altered
     Dosage: NOT SPECIFIED DOSAGE FORM
     Route: 065
  165. ALUMINUM [Suspect]
     Active Substance: ALUMINUM
     Indication: Prophylaxis
     Dosage: NOT SPECIFIED DOSAGE FORM
     Route: 065
  166. ALUMINUM [Suspect]
     Active Substance: ALUMINUM
     Indication: Rash
     Dosage: NOT SPECIFIED DOSAGE FORM
     Route: 065
  167. PREMARIN [Suspect]
     Active Substance: ESTROGENS, CONJUGATED
     Indication: Product used for unknown indication
     Dosage: AMOUNT: 0.5 MILLIGRAM?NOT SPECIFIED DOSAGE FORM
     Route: 061
  168. PREMARIN [Suspect]
     Active Substance: ESTROGENS, CONJUGATED
     Indication: Product used for unknown indication
     Dosage: AMOUNT: 5 GRAM?TABLETS DOSAGE FORM
     Route: 061
  169. PREMARIN [Suspect]
     Active Substance: ESTROGENS, CONJUGATED
     Indication: Product used for unknown indication
     Dosage: NOT SPECIFIED DOSAGE FORM
     Route: 061
  170. PREMARIN [Suspect]
     Active Substance: ESTROGENS, CONJUGATED
     Indication: Product used for unknown indication
     Dosage: NOT SPECIFIED DOSAGE FORM
     Route: 065
  171. PREMARIN [Suspect]
     Active Substance: ESTROGENS, CONJUGATED
     Indication: Product used for unknown indication
     Dosage: TABLETS DOSAGE FORM
     Route: 065
  172. PREMARIN [Suspect]
     Active Substance: ESTROGENS, CONJUGATED
     Indication: Product used for unknown indication
     Route: 061
  173. RANITIDINE [Suspect]
     Active Substance: RANITIDINE
     Indication: Abdominal discomfort
     Dosage: AMOUNT: 1 DOSAGE FORMS?CAPSULES DOSAGE FORM
     Route: 065
  174. RANITIDINE [Suspect]
     Active Substance: RANITIDINE
     Indication: Insomnia
     Dosage: AMOUNT: 1 DOSAGE FORMS?CAPSULES DOSAGE FORM
     Route: 065
  175. RANITIDINE [Suspect]
     Active Substance: RANITIDINE
     Indication: Abdominal discomfort
     Dosage: AMOUNT: 2 DOSAGE FORMS?NOT SPECIFIED DOSAGE FORM
     Route: 065
  176. RANITIDINE [Suspect]
     Active Substance: RANITIDINE
     Indication: Insomnia
     Dosage: AMOUNT: 2 DOSAGE FORMS?NOT SPECIFIED DOSAGE FORM
     Route: 065
  177. RANITIDINE [Suspect]
     Active Substance: RANITIDINE
     Indication: Abdominal discomfort
     Dosage: AMOUNT: 30 ML
     Route: 048
  178. RANITIDINE [Suspect]
     Active Substance: RANITIDINE
     Indication: Insomnia
     Dosage: AMOUNT: 30 ML
     Route: 048
  179. RANITIDINE [Suspect]
     Active Substance: RANITIDINE
     Indication: Abdominal discomfort
     Dosage: 1 EVERY 12 HOURS?AMOUNT: 1 DOSAGE FORMS
     Route: 065
  180. RANITIDINE [Suspect]
     Active Substance: RANITIDINE
     Indication: Insomnia
     Dosage: 1 EVERY 12 HOURS?AMOUNT: 1 DOSAGE FORMS
     Route: 065
  181. RANITIDINE [Suspect]
     Active Substance: RANITIDINE
     Indication: Abdominal discomfort
     Dosage: 1 EVERY 12 HOURS?AMOUNT: 150 MILLIGRAM
     Route: 065
  182. RANITIDINE [Suspect]
     Active Substance: RANITIDINE
     Indication: Insomnia
     Dosage: 1 EVERY 12 HOURS?AMOUNT: 150 MILLIGRAM
     Route: 065
  183. RANITIDINE [Suspect]
     Active Substance: RANITIDINE
     Indication: Abdominal discomfort
     Dosage: 1 EVERY 24 HOURS?AMOUNT: 2 DOSAGE FORMS
     Route: 065
  184. RANITIDINE [Suspect]
     Active Substance: RANITIDINE
     Indication: Insomnia
     Dosage: 1 EVERY 24 HOURS?AMOUNT: 2 DOSAGE FORMS
     Route: 065
  185. RANITIDINE [Suspect]
     Active Substance: RANITIDINE
     Indication: Abdominal discomfort
     Route: 065
  186. RANITIDINE [Suspect]
     Active Substance: RANITIDINE
     Indication: Insomnia
     Route: 065
  187. RANITIDINE [Suspect]
     Active Substance: RANITIDINE
     Indication: Abdominal discomfort
     Dosage: TABLETS DOSAGE FORM
     Route: 065
  188. RANITIDINE [Suspect]
     Active Substance: RANITIDINE
     Indication: Insomnia
     Dosage: TABLETS DOSAGE FORM
     Route: 065
  189. RANITIDINE [Suspect]
     Active Substance: RANITIDINE
     Indication: Abdominal discomfort
     Dosage: 1 EVERY 12 HOURS
     Route: 065
  190. RANITIDINE [Suspect]
     Active Substance: RANITIDINE
     Indication: Insomnia
     Dosage: 1 EVERY 12 HOURS
     Route: 065
  191. ALUMINUM HYDROXIDE [Suspect]
     Active Substance: ALUMINUM HYDROXIDE
     Indication: Abdominal discomfort
     Dosage: AMOUNT: 0.2 ML?NOT SPECIFIED DOSAGE FORM
     Route: 065
  192. ALUMINUM HYDROXIDE [Suspect]
     Active Substance: ALUMINUM HYDROXIDE
     Indication: Mood altered
     Dosage: AMOUNT: 0.2 ML?NOT SPECIFIED DOSAGE FORM
     Route: 065
  193. ALUMINUM HYDROXIDE [Suspect]
     Active Substance: ALUMINUM HYDROXIDE
     Indication: Prophylaxis
     Dosage: AMOUNT: 0.2 ML?NOT SPECIFIED DOSAGE FORM
     Route: 065
  194. ALUMINUM HYDROXIDE [Suspect]
     Active Substance: ALUMINUM HYDROXIDE
     Indication: Rash
     Dosage: AMOUNT: 0.2 ML?NOT SPECIFIED DOSAGE FORM
     Route: 065
  195. ALUMINUM HYDROXIDE [Suspect]
     Active Substance: ALUMINUM HYDROXIDE
     Indication: Abdominal discomfort
     Dosage: AMOUNT: 0.5 GRAM?NOT SPECIFIED DOSAGE FORM
     Route: 061
  196. ALUMINUM HYDROXIDE [Suspect]
     Active Substance: ALUMINUM HYDROXIDE
     Indication: Mood altered
     Dosage: AMOUNT: 0.5 GRAM?NOT SPECIFIED DOSAGE FORM
     Route: 061
  197. ALUMINUM HYDROXIDE [Suspect]
     Active Substance: ALUMINUM HYDROXIDE
     Indication: Prophylaxis
     Dosage: AMOUNT: 0.5 GRAM?NOT SPECIFIED DOSAGE FORM
     Route: 061
  198. ALUMINUM HYDROXIDE [Suspect]
     Active Substance: ALUMINUM HYDROXIDE
     Indication: Rash
     Dosage: AMOUNT: 0.5 GRAM?NOT SPECIFIED DOSAGE FORM
     Route: 061
  199. ALUMINUM HYDROXIDE [Suspect]
     Active Substance: ALUMINUM HYDROXIDE
     Indication: Abdominal discomfort
     Dosage: AMOUNT: 1 DOSAGE FORMS?NOT SPECIFIED DOSAGE FORM
     Route: 065
  200. ALUMINUM HYDROXIDE [Suspect]
     Active Substance: ALUMINUM HYDROXIDE
     Indication: Mood altered
     Dosage: AMOUNT: 1 DOSAGE FORMS?NOT SPECIFIED DOSAGE FORM
     Route: 065
  201. ALUMINUM HYDROXIDE [Suspect]
     Active Substance: ALUMINUM HYDROXIDE
     Indication: Prophylaxis
     Dosage: AMOUNT: 1 DOSAGE FORMS?NOT SPECIFIED DOSAGE FORM
     Route: 065
  202. ALUMINUM HYDROXIDE [Suspect]
     Active Substance: ALUMINUM HYDROXIDE
     Indication: Rash
     Dosage: AMOUNT: 1 DOSAGE FORMS?NOT SPECIFIED DOSAGE FORM
     Route: 065
  203. ALUMINUM HYDROXIDE [Suspect]
     Active Substance: ALUMINUM HYDROXIDE
     Indication: Abdominal discomfort
     Dosage: AMOUNT: 1 DOSAGE FORMS?NOT SPECIFIED DOSAGE FORM
     Route: 067
  204. ALUMINUM HYDROXIDE [Suspect]
     Active Substance: ALUMINUM HYDROXIDE
     Indication: Mood altered
     Dosage: AMOUNT: 1 DOSAGE FORMS?NOT SPECIFIED DOSAGE FORM
     Route: 067
  205. ALUMINUM HYDROXIDE [Suspect]
     Active Substance: ALUMINUM HYDROXIDE
     Indication: Prophylaxis
     Dosage: AMOUNT: 1 DOSAGE FORMS?NOT SPECIFIED DOSAGE FORM
     Route: 067
  206. ALUMINUM HYDROXIDE [Suspect]
     Active Substance: ALUMINUM HYDROXIDE
     Indication: Rash
     Dosage: AMOUNT: 1 DOSAGE FORMS?NOT SPECIFIED DOSAGE FORM
     Route: 067
  207. ALUMINUM HYDROXIDE [Suspect]
     Active Substance: ALUMINUM HYDROXIDE
     Indication: Abdominal discomfort
     Dosage: AMOUNT: 1 DOSAGE FORMS?TABLETS DOSAGE FORM
     Route: 065
  208. ALUMINUM HYDROXIDE [Suspect]
     Active Substance: ALUMINUM HYDROXIDE
     Indication: Mood altered
     Dosage: AMOUNT: 1 DOSAGE FORMS?TABLETS DOSAGE FORM
     Route: 065
  209. ALUMINUM HYDROXIDE [Suspect]
     Active Substance: ALUMINUM HYDROXIDE
     Indication: Prophylaxis
     Dosage: AMOUNT: 1 DOSAGE FORMS?TABLETS DOSAGE FORM
     Route: 065
  210. ALUMINUM HYDROXIDE [Suspect]
     Active Substance: ALUMINUM HYDROXIDE
     Indication: Rash
     Dosage: AMOUNT: 1 DOSAGE FORMS?TABLETS DOSAGE FORM
     Route: 065
  211. ALUMINUM HYDROXIDE [Suspect]
     Active Substance: ALUMINUM HYDROXIDE
     Indication: Abdominal discomfort
     Dosage: AMOUNT: 3 DOSAGE FORMS
     Route: 065
  212. ALUMINUM HYDROXIDE [Suspect]
     Active Substance: ALUMINUM HYDROXIDE
     Indication: Mood altered
     Dosage: AMOUNT: 3 DOSAGE FORMS
     Route: 065
  213. ALUMINUM HYDROXIDE [Suspect]
     Active Substance: ALUMINUM HYDROXIDE
     Indication: Prophylaxis
     Dosage: AMOUNT: 3 DOSAGE FORMS
     Route: 065
  214. ALUMINUM HYDROXIDE [Suspect]
     Active Substance: ALUMINUM HYDROXIDE
     Indication: Rash
     Dosage: AMOUNT: 3 DOSAGE FORMS
     Route: 065
  215. ALUMINUM HYDROXIDE [Suspect]
     Active Substance: ALUMINUM HYDROXIDE
     Indication: Abdominal discomfort
     Dosage: AMOUNT: 30 ML
     Route: 048
  216. ALUMINUM HYDROXIDE [Suspect]
     Active Substance: ALUMINUM HYDROXIDE
     Indication: Mood altered
     Dosage: AMOUNT: 30 ML
     Route: 048
  217. ALUMINUM HYDROXIDE [Suspect]
     Active Substance: ALUMINUM HYDROXIDE
     Indication: Prophylaxis
     Dosage: AMOUNT: 30 ML
     Route: 048
  218. ALUMINUM HYDROXIDE [Suspect]
     Active Substance: ALUMINUM HYDROXIDE
     Indication: Rash
     Dosage: AMOUNT: 30 ML
     Route: 048
  219. ALUMINUM HYDROXIDE [Suspect]
     Active Substance: ALUMINUM HYDROXIDE
     Indication: Abdominal discomfort
     Dosage: AMOUNT: 5 GRAM
     Route: 061
  220. ALUMINUM HYDROXIDE [Suspect]
     Active Substance: ALUMINUM HYDROXIDE
     Indication: Mood altered
     Dosage: AMOUNT: 5 GRAM
     Route: 061
  221. ALUMINUM HYDROXIDE [Suspect]
     Active Substance: ALUMINUM HYDROXIDE
     Indication: Prophylaxis
     Dosage: AMOUNT: 5 GRAM
     Route: 061
  222. ALUMINUM HYDROXIDE [Suspect]
     Active Substance: ALUMINUM HYDROXIDE
     Indication: Rash
     Dosage: AMOUNT: 5 GRAM
     Route: 061
  223. ALUMINUM HYDROXIDE [Suspect]
     Active Substance: ALUMINUM HYDROXIDE
     Indication: Abdominal discomfort
     Dosage: 1 EVERY 1 DAYS?AMOUNT: 1 DOSAGE FORMS?TABLETS DOSAGE FORM
     Route: 065
  224. ALUMINUM HYDROXIDE [Suspect]
     Active Substance: ALUMINUM HYDROXIDE
     Indication: Mood altered
     Dosage: 1 EVERY 1 DAYS?AMOUNT: 1 DOSAGE FORMS?TABLETS DOSAGE FORM
     Route: 065
  225. ALUMINUM HYDROXIDE [Suspect]
     Active Substance: ALUMINUM HYDROXIDE
     Indication: Prophylaxis
     Dosage: 1 EVERY 1 DAYS?AMOUNT: 1 DOSAGE FORMS?TABLETS DOSAGE FORM
     Route: 065
  226. ALUMINUM HYDROXIDE [Suspect]
     Active Substance: ALUMINUM HYDROXIDE
     Indication: Rash
     Dosage: 1 EVERY 1 DAYS?AMOUNT: 1 DOSAGE FORMS?TABLETS DOSAGE FORM
     Route: 065
  227. ALUMINUM HYDROXIDE [Suspect]
     Active Substance: ALUMINUM HYDROXIDE
     Indication: Abdominal discomfort
     Dosage: 1 EVERY 12 HOURS?AMOUNT: 4 DOSAGE FORMS?NOT SPECIFIED DOSAGE FORM
     Route: 065
  228. ALUMINUM HYDROXIDE [Suspect]
     Active Substance: ALUMINUM HYDROXIDE
     Indication: Mood altered
     Dosage: 1 EVERY 12 HOURS?AMOUNT: 4 DOSAGE FORMS?NOT SPECIFIED DOSAGE FORM
     Route: 065
  229. ALUMINUM HYDROXIDE [Suspect]
     Active Substance: ALUMINUM HYDROXIDE
     Indication: Prophylaxis
     Dosage: 1 EVERY 12 HOURS?AMOUNT: 4 DOSAGE FORMS?NOT SPECIFIED DOSAGE FORM
     Route: 065
  230. ALUMINUM HYDROXIDE [Suspect]
     Active Substance: ALUMINUM HYDROXIDE
     Indication: Rash
     Dosage: 1 EVERY 12 HOURS?AMOUNT: 4 DOSAGE FORMS?NOT SPECIFIED DOSAGE FORM
     Route: 065
  231. ALUMINUM HYDROXIDE [Suspect]
     Active Substance: ALUMINUM HYDROXIDE
     Indication: Abdominal discomfort
     Route: 065
  232. ALUMINUM HYDROXIDE [Suspect]
     Active Substance: ALUMINUM HYDROXIDE
     Indication: Mood altered
     Route: 065
  233. ALUMINUM HYDROXIDE [Suspect]
     Active Substance: ALUMINUM HYDROXIDE
     Indication: Prophylaxis
     Route: 065
  234. ALUMINUM HYDROXIDE [Suspect]
     Active Substance: ALUMINUM HYDROXIDE
     Indication: Rash
     Route: 065
  235. ALUMINUM HYDROXIDE [Suspect]
     Active Substance: ALUMINUM HYDROXIDE
     Indication: Abdominal discomfort
     Dosage: NOT SPECIFIED DOSAGE FORM
     Route: 065
  236. ALUMINUM HYDROXIDE [Suspect]
     Active Substance: ALUMINUM HYDROXIDE
     Indication: Mood altered
     Dosage: NOT SPECIFIED DOSAGE FORM
     Route: 065
  237. ALUMINUM HYDROXIDE [Suspect]
     Active Substance: ALUMINUM HYDROXIDE
     Indication: Prophylaxis
     Dosage: NOT SPECIFIED DOSAGE FORM
     Route: 065
  238. ALUMINUM HYDROXIDE [Suspect]
     Active Substance: ALUMINUM HYDROXIDE
     Indication: Rash
     Dosage: NOT SPECIFIED DOSAGE FORM
     Route: 065
  239. ALUMINUM HYDROXIDE [Suspect]
     Active Substance: ALUMINUM HYDROXIDE
     Indication: Abdominal discomfort
     Dosage: TABLETS DOSAGE FORM
     Route: 065
  240. ALUMINUM HYDROXIDE [Suspect]
     Active Substance: ALUMINUM HYDROXIDE
     Indication: Mood altered
     Dosage: TABLETS DOSAGE FORM
     Route: 065
  241. ALUMINUM HYDROXIDE [Suspect]
     Active Substance: ALUMINUM HYDROXIDE
     Indication: Prophylaxis
     Dosage: TABLETS DOSAGE FORM
     Route: 065
  242. ALUMINUM HYDROXIDE [Suspect]
     Active Substance: ALUMINUM HYDROXIDE
     Indication: Rash
     Dosage: TABLETS DOSAGE FORM
     Route: 065
  243. RANITIDINE HYDROCHLORIDE [Suspect]
     Active Substance: RANITIDINE HYDROCHLORIDE
     Indication: Product used for unknown indication
     Dosage: AMOUNT: 1 DOSAGE FORMS
     Route: 065
  244. RANITIDINE HYDROCHLORIDE [Suspect]
     Active Substance: RANITIDINE HYDROCHLORIDE
     Indication: Product used for unknown indication
     Dosage: 1 EVERY 12 HOURS?AMOUNT: 150 MILLIGRAM
     Route: 065
  245. RANITIDINE HYDROCHLORIDE [Suspect]
     Active Substance: RANITIDINE HYDROCHLORIDE
     Indication: Product used for unknown indication
     Dosage: TABLETS DOSAGE FORM
     Route: 065
  246. SIMETHICONE (DIMETHICONE) [Suspect]
     Active Substance: DIMETHICONE
     Indication: Abdominal discomfort
     Dosage: AMOUNT: 1 DOSAGE FORMS?CAPSULES DOSAGE FORM
     Route: 065
  247. SIMETHICONE (DIMETHICONE) [Suspect]
     Active Substance: DIMETHICONE
     Indication: Insomnia
     Dosage: AMOUNT: 1 DOSAGE FORMS?CAPSULES DOSAGE FORM
     Route: 065
  248. SIMETHICONE (DIMETHICONE) [Suspect]
     Active Substance: DIMETHICONE
     Indication: Abdominal discomfort
     Dosage: AMOUNT: 30 ML?NOT SPECIFIED DOSAGE FORM
     Route: 048
  249. SIMETHICONE (DIMETHICONE) [Suspect]
     Active Substance: DIMETHICONE
     Indication: Insomnia
     Dosage: AMOUNT: 30 ML?NOT SPECIFIED DOSAGE FORM
     Route: 048
  250. SIMETHICONE (DIMETHICONE) [Suspect]
     Active Substance: DIMETHICONE
     Indication: Abdominal discomfort
     Dosage: 1 EVERY 1 DAYS?AMOUNT: 1 DOSAGE FORMS?TABLETS DOSAGE FORM
     Route: 048
  251. SIMETHICONE (DIMETHICONE) [Suspect]
     Active Substance: DIMETHICONE
     Indication: Insomnia
     Dosage: 1 EVERY 1 DAYS?AMOUNT: 1 DOSAGE FORMS?TABLETS DOSAGE FORM
     Route: 048
  252. SIMETHICONE (DIMETHICONE) [Suspect]
     Active Substance: DIMETHICONE
     Indication: Abdominal discomfort
     Route: 065
  253. SIMETHICONE (DIMETHICONE) [Suspect]
     Active Substance: DIMETHICONE
     Indication: Insomnia
     Route: 065
  254. SIMETHICONE (DIMETHICONE) [Suspect]
     Active Substance: DIMETHICONE
     Indication: Abdominal discomfort
     Dosage: NOT SPECIFIED DOSAGE FORM
     Route: 065
  255. SIMETHICONE (DIMETHICONE) [Suspect]
     Active Substance: DIMETHICONE
     Indication: Insomnia
     Dosage: NOT SPECIFIED DOSAGE FORM
     Route: 065
  256. LEVOTHYROXINE [Suspect]
     Active Substance: LEVOTHYROXINE
     Indication: Abdominal discomfort
     Dosage: AMOUNT: 0.5 MILLIGRAM?NOT SPECIFIED DOSAGE FORM
     Route: 061
  257. LEVOTHYROXINE [Suspect]
     Active Substance: LEVOTHYROXINE
     Indication: Mood altered
     Dosage: AMOUNT: 0.5 MILLIGRAM?NOT SPECIFIED DOSAGE FORM
     Route: 061
  258. LEVOTHYROXINE [Suspect]
     Active Substance: LEVOTHYROXINE
     Indication: Abdominal discomfort
     Dosage: AMOUNT: 1 DOSAGE FORMS
     Route: 065
  259. LEVOTHYROXINE [Suspect]
     Active Substance: LEVOTHYROXINE
     Indication: Mood altered
     Dosage: AMOUNT: 1 DOSAGE FORMS
     Route: 065
  260. LEVOTHYROXINE [Suspect]
     Active Substance: LEVOTHYROXINE
     Indication: Abdominal discomfort
     Dosage: AMOUNT: 3 DOSAGE FORMS?NOT SPECIFIED DOSAGE FORM
     Route: 065
  261. LEVOTHYROXINE [Suspect]
     Active Substance: LEVOTHYROXINE
     Indication: Mood altered
     Dosage: AMOUNT: 3 DOSAGE FORMS?NOT SPECIFIED DOSAGE FORM
     Route: 065
  262. LEVOTHYROXINE [Suspect]
     Active Substance: LEVOTHYROXINE
     Indication: Abdominal discomfort
     Dosage: AMOUNT: 30 ML
     Route: 048
  263. LEVOTHYROXINE [Suspect]
     Active Substance: LEVOTHYROXINE
     Indication: Mood altered
     Dosage: AMOUNT: 30 ML
     Route: 048
  264. LEVOTHYROXINE [Suspect]
     Active Substance: LEVOTHYROXINE
     Indication: Abdominal discomfort
     Dosage: AMOUNT: 5 GRAM?TABLETS DOSAGE FORM
     Route: 061
  265. LEVOTHYROXINE [Suspect]
     Active Substance: LEVOTHYROXINE
     Indication: Mood altered
     Dosage: AMOUNT: 5 GRAM?TABLETS DOSAGE FORM
     Route: 061
  266. LEVOTHYROXINE [Suspect]
     Active Substance: LEVOTHYROXINE
     Indication: Abdominal discomfort
     Dosage: 1 EVERY 12 HOURS?AMOUNT: 1 DOSAGE FORMS
     Route: 065
  267. LEVOTHYROXINE [Suspect]
     Active Substance: LEVOTHYROXINE
     Indication: Mood altered
     Dosage: 1 EVERY 12 HOURS?AMOUNT: 1 DOSAGE FORMS
     Route: 065
  268. LEVOTHYROXINE [Suspect]
     Active Substance: LEVOTHYROXINE
     Indication: Abdominal discomfort
     Dosage: 1 EVERY 12 HOURS?AMOUNT: 150 MILLIGRAM
     Route: 065
  269. LEVOTHYROXINE [Suspect]
     Active Substance: LEVOTHYROXINE
     Indication: Mood altered
     Dosage: 1 EVERY 12 HOURS?AMOUNT: 150 MILLIGRAM
     Route: 065
  270. LEVOTHYROXINE [Suspect]
     Active Substance: LEVOTHYROXINE
     Indication: Abdominal discomfort
     Dosage: 1 EVERY 24 HOURS?AMOUNT: 2 DOSAGE FORMS
     Route: 065
  271. LEVOTHYROXINE [Suspect]
     Active Substance: LEVOTHYROXINE
     Indication: Mood altered
     Dosage: 1 EVERY 24 HOURS?AMOUNT: 2 DOSAGE FORMS
     Route: 065
  272. LEVOTHYROXINE [Suspect]
     Active Substance: LEVOTHYROXINE
     Indication: Abdominal discomfort
     Route: 065
  273. LEVOTHYROXINE [Suspect]
     Active Substance: LEVOTHYROXINE
     Indication: Mood altered
     Route: 065
  274. LEVOTHYROXINE [Suspect]
     Active Substance: LEVOTHYROXINE
     Indication: Abdominal discomfort
     Dosage: NOT SPECIFIED DOSAGE FORM
     Route: 061
  275. LEVOTHYROXINE [Suspect]
     Active Substance: LEVOTHYROXINE
     Indication: Mood altered
     Dosage: NOT SPECIFIED DOSAGE FORM
     Route: 061
  276. LEVOTHYROXINE [Suspect]
     Active Substance: LEVOTHYROXINE
     Indication: Abdominal discomfort
     Dosage: TABLETS DOSAGE FORM
     Route: 065
  277. LEVOTHYROXINE [Suspect]
     Active Substance: LEVOTHYROXINE
     Indication: Mood altered
     Dosage: TABLETS DOSAGE FORM
     Route: 065
  278. VALPROATE [Suspect]
     Active Substance: VALPROIC ACID
     Indication: Insomnia
     Dosage: AMOUNT: 1 DOSAGE FORMS?CAPSULES DOSAGE FORM
     Route: 065
  279. VALPROATE [Suspect]
     Active Substance: VALPROIC ACID
     Indication: Insomnia
     Dosage: AMOUNT: 2 DOSAGE FORMS?NOT SPECIFIED DOSAGE FORM
     Route: 065
  280. VALPROATE [Suspect]
     Active Substance: VALPROIC ACID
     Indication: Insomnia
     Dosage: 1 EVERY 24 HOURS?AMOUNT: 1 DOSAGE FORMS?TABLETS DOSAGE FORM
     Route: 065
  281. VALPROATE [Suspect]
     Active Substance: VALPROIC ACID
     Indication: Insomnia
     Route: 065
  282. VALPROATE [Suspect]
     Active Substance: VALPROIC ACID
     Indication: Insomnia
     Dosage: 1 EVERY 12 HOURS
     Route: 065
  283. ACETAMINOPHEN\BUTALBITAL\CAFFEINE [Suspect]
     Active Substance: ACETAMINOPHEN\BUTALBITAL\CAFFEINE
     Indication: Product used for unknown indication
     Dosage: 1 EVERY 12 HOURS
     Route: 065
  284. ACETAMINOPHEN\BUTALBITAL\CAFFEINE [Suspect]
     Active Substance: ACETAMINOPHEN\BUTALBITAL\CAFFEINE
     Indication: Product used for unknown indication
     Route: 065
  285. ESTROGENS [Suspect]
     Active Substance: ESTROGENS
     Indication: Abdominal discomfort
     Dosage: AMOUNT: 0.2 ML?NOT SPECIFIED DOSAGE FORM
     Route: 065
  286. ESTROGENS [Suspect]
     Active Substance: ESTROGENS
     Indication: Insomnia
     Dosage: AMOUNT: 0.2 ML?NOT SPECIFIED DOSAGE FORM
     Route: 065
  287. ESTROGENS [Suspect]
     Active Substance: ESTROGENS
     Indication: Mood altered
     Dosage: AMOUNT: 0.2 ML?NOT SPECIFIED DOSAGE FORM
     Route: 065
  288. ESTROGENS [Suspect]
     Active Substance: ESTROGENS
     Indication: Prophylaxis
     Dosage: AMOUNT: 0.2 ML?NOT SPECIFIED DOSAGE FORM
     Route: 065
  289. ESTROGENS [Suspect]
     Active Substance: ESTROGENS
     Indication: Abdominal discomfort
     Dosage: AMOUNT: 0.5 GRAM?NOT SPECIFIED DOSAGE FORM
     Route: 061
  290. ESTROGENS [Suspect]
     Active Substance: ESTROGENS
     Indication: Insomnia
     Dosage: AMOUNT: 0.5 GRAM?NOT SPECIFIED DOSAGE FORM
     Route: 061
  291. ESTROGENS [Suspect]
     Active Substance: ESTROGENS
     Indication: Mood altered
     Dosage: AMOUNT: 0.5 GRAM?NOT SPECIFIED DOSAGE FORM
     Route: 061
  292. ESTROGENS [Suspect]
     Active Substance: ESTROGENS
     Indication: Prophylaxis
     Dosage: AMOUNT: 0.5 GRAM?NOT SPECIFIED DOSAGE FORM
     Route: 061
  293. ESTROGENS [Suspect]
     Active Substance: ESTROGENS
     Indication: Abdominal discomfort
     Dosage: AMOUNT: 1 DOSAGE FORMS
     Route: 065
  294. ESTROGENS [Suspect]
     Active Substance: ESTROGENS
     Indication: Insomnia
     Dosage: AMOUNT: 1 DOSAGE FORMS
     Route: 065
  295. ESTROGENS [Suspect]
     Active Substance: ESTROGENS
     Indication: Mood altered
     Dosage: AMOUNT: 1 DOSAGE FORMS
     Route: 065
  296. ESTROGENS [Suspect]
     Active Substance: ESTROGENS
     Indication: Prophylaxis
     Dosage: AMOUNT: 1 DOSAGE FORMS
     Route: 065
  297. ESTROGENS [Suspect]
     Active Substance: ESTROGENS
     Indication: Abdominal discomfort
     Dosage: AMOUNT: 1 DOSAGE FORMS?CAPSULES DOSAGE FORM
     Route: 065
  298. ESTROGENS [Suspect]
     Active Substance: ESTROGENS
     Indication: Insomnia
     Dosage: AMOUNT: 1 DOSAGE FORMS?CAPSULES DOSAGE FORM
     Route: 065
  299. ESTROGENS [Suspect]
     Active Substance: ESTROGENS
     Indication: Mood altered
     Dosage: AMOUNT: 1 DOSAGE FORMS?CAPSULES DOSAGE FORM
     Route: 065
  300. ESTROGENS [Suspect]
     Active Substance: ESTROGENS
     Indication: Prophylaxis
     Dosage: AMOUNT: 1 DOSAGE FORMS?CAPSULES DOSAGE FORM
     Route: 065
  301. ESTROGENS [Suspect]
     Active Substance: ESTROGENS
     Indication: Abdominal discomfort
     Dosage: AMOUNT: 1 DOSAGE FORMS?NOT SPECIFIED DOSAGE FORM
     Route: 065
  302. ESTROGENS [Suspect]
     Active Substance: ESTROGENS
     Indication: Insomnia
     Dosage: AMOUNT: 1 DOSAGE FORMS?NOT SPECIFIED DOSAGE FORM
     Route: 065
  303. ESTROGENS [Suspect]
     Active Substance: ESTROGENS
     Indication: Mood altered
     Dosage: AMOUNT: 1 DOSAGE FORMS?NOT SPECIFIED DOSAGE FORM
     Route: 065
  304. ESTROGENS [Suspect]
     Active Substance: ESTROGENS
     Indication: Prophylaxis
     Dosage: AMOUNT: 1 DOSAGE FORMS?NOT SPECIFIED DOSAGE FORM
     Route: 065
  305. ESTROGENS [Suspect]
     Active Substance: ESTROGENS
     Indication: Abdominal discomfort
     Dosage: AMOUNT: 2 DOSAGE FORMS
     Route: 065
  306. ESTROGENS [Suspect]
     Active Substance: ESTROGENS
     Indication: Insomnia
     Dosage: AMOUNT: 2 DOSAGE FORMS
     Route: 065
  307. ESTROGENS [Suspect]
     Active Substance: ESTROGENS
     Indication: Mood altered
     Dosage: AMOUNT: 2 DOSAGE FORMS
     Route: 065
  308. ESTROGENS [Suspect]
     Active Substance: ESTROGENS
     Indication: Prophylaxis
     Dosage: AMOUNT: 2 DOSAGE FORMS
     Route: 065
  309. ESTROGENS [Suspect]
     Active Substance: ESTROGENS
     Indication: Abdominal discomfort
     Dosage: AMOUNT: 30 ML?NOT SPECIFIED DOSAGE FORM
     Route: 048
  310. ESTROGENS [Suspect]
     Active Substance: ESTROGENS
     Indication: Insomnia
     Dosage: AMOUNT: 30 ML?NOT SPECIFIED DOSAGE FORM
     Route: 048
  311. ESTROGENS [Suspect]
     Active Substance: ESTROGENS
     Indication: Mood altered
     Dosage: AMOUNT: 30 ML?NOT SPECIFIED DOSAGE FORM
     Route: 048
  312. ESTROGENS [Suspect]
     Active Substance: ESTROGENS
     Indication: Prophylaxis
     Dosage: AMOUNT: 30 ML?NOT SPECIFIED DOSAGE FORM
     Route: 048
  313. ESTROGENS [Suspect]
     Active Substance: ESTROGENS
     Indication: Abdominal discomfort
     Dosage: AMOUNT: 5 GRAM
     Route: 061
  314. ESTROGENS [Suspect]
     Active Substance: ESTROGENS
     Indication: Insomnia
     Dosage: AMOUNT: 5 GRAM
     Route: 061
  315. ESTROGENS [Suspect]
     Active Substance: ESTROGENS
     Indication: Mood altered
     Dosage: AMOUNT: 5 GRAM
     Route: 061
  316. ESTROGENS [Suspect]
     Active Substance: ESTROGENS
     Indication: Prophylaxis
     Dosage: AMOUNT: 5 GRAM
     Route: 061
  317. ESTROGENS [Suspect]
     Active Substance: ESTROGENS
     Indication: Abdominal discomfort
     Dosage: 1 EVERY 1 DAYS?AMOUNT: 1 DOSAGE FORMS?TABLETS DOSAGE FORM
     Route: 048
  318. ESTROGENS [Suspect]
     Active Substance: ESTROGENS
     Indication: Insomnia
     Dosage: 1 EVERY 1 DAYS?AMOUNT: 1 DOSAGE FORMS?TABLETS DOSAGE FORM
     Route: 048
  319. ESTROGENS [Suspect]
     Active Substance: ESTROGENS
     Indication: Mood altered
     Dosage: 1 EVERY 1 DAYS?AMOUNT: 1 DOSAGE FORMS?TABLETS DOSAGE FORM
     Route: 048
  320. ESTROGENS [Suspect]
     Active Substance: ESTROGENS
     Indication: Prophylaxis
     Dosage: 1 EVERY 1 DAYS?AMOUNT: 1 DOSAGE FORMS?TABLETS DOSAGE FORM
     Route: 048
  321. ESTROGENS [Suspect]
     Active Substance: ESTROGENS
     Indication: Abdominal discomfort
     Dosage: 1 EVERY 12 HOURS?AMOUNT: 150 MILLIGRAM
     Route: 065
  322. ESTROGENS [Suspect]
     Active Substance: ESTROGENS
     Indication: Insomnia
     Dosage: 1 EVERY 12 HOURS?AMOUNT: 150 MILLIGRAM
     Route: 065
  323. ESTROGENS [Suspect]
     Active Substance: ESTROGENS
     Indication: Mood altered
     Dosage: 1 EVERY 12 HOURS?AMOUNT: 150 MILLIGRAM
     Route: 065
  324. ESTROGENS [Suspect]
     Active Substance: ESTROGENS
     Indication: Prophylaxis
     Dosage: 1 EVERY 12 HOURS?AMOUNT: 150 MILLIGRAM
     Route: 065
  325. ESTROGENS [Suspect]
     Active Substance: ESTROGENS
     Indication: Abdominal discomfort
     Route: 061
  326. ESTROGENS [Suspect]
     Active Substance: ESTROGENS
     Indication: Insomnia
     Route: 061
  327. ESTROGENS [Suspect]
     Active Substance: ESTROGENS
     Indication: Mood altered
     Route: 061
  328. ESTROGENS [Suspect]
     Active Substance: ESTROGENS
     Indication: Prophylaxis
     Route: 061
  329. ESTROGENS [Suspect]
     Active Substance: ESTROGENS
     Indication: Abdominal discomfort
     Route: 065
  330. ESTROGENS [Suspect]
     Active Substance: ESTROGENS
     Indication: Insomnia
     Route: 065
  331. ESTROGENS [Suspect]
     Active Substance: ESTROGENS
     Indication: Mood altered
     Route: 065
  332. ESTROGENS [Suspect]
     Active Substance: ESTROGENS
     Indication: Prophylaxis
     Route: 065
  333. ESTROGENS [Suspect]
     Active Substance: ESTROGENS
     Indication: Abdominal discomfort
     Dosage: NOT SPECIFIED DOSAGE FORM
     Route: 065
  334. ESTROGENS [Suspect]
     Active Substance: ESTROGENS
     Indication: Insomnia
     Dosage: NOT SPECIFIED DOSAGE FORM
     Route: 065
  335. ESTROGENS [Suspect]
     Active Substance: ESTROGENS
     Indication: Mood altered
     Dosage: NOT SPECIFIED DOSAGE FORM
     Route: 065
  336. ESTROGENS [Suspect]
     Active Substance: ESTROGENS
     Indication: Prophylaxis
     Dosage: NOT SPECIFIED DOSAGE FORM
     Route: 065
  337. ESTROGENS [Suspect]
     Active Substance: ESTROGENS
     Indication: Abdominal discomfort
     Dosage: TABLETS DOSAGE FORM
     Route: 065
  338. ESTROGENS [Suspect]
     Active Substance: ESTROGENS
     Indication: Insomnia
     Dosage: TABLETS DOSAGE FORM
     Route: 065
  339. ESTROGENS [Suspect]
     Active Substance: ESTROGENS
     Indication: Mood altered
     Dosage: TABLETS DOSAGE FORM
     Route: 065
  340. ESTROGENS [Suspect]
     Active Substance: ESTROGENS
     Indication: Prophylaxis
     Dosage: TABLETS DOSAGE FORM
     Route: 065

REACTIONS (7)
  - Drug interaction [Not Recovered/Not Resolved]
  - Drug level increased [Not Recovered/Not Resolved]
  - Electrocardiogram QT prolonged [Not Recovered/Not Resolved]
  - Insomnia [Not Recovered/Not Resolved]
  - Product use issue [Not Recovered/Not Resolved]
  - Schizoaffective disorder [Not Recovered/Not Resolved]
  - Sinus rhythm [Not Recovered/Not Resolved]
